FAERS Safety Report 4323384-1 (Version None)
Quarter: 2004Q1

REPORT INFORMATION
  Report Type: 
  Country: None (occurrence: None)
  Receive Date: 20040325
  Receipt Date: 20040322
  Transmission Date: 20041129
  Serious: Yes (Other)
  Sender: FDA-Public Use
  Company Number: US-GLAXOSMITHKLINE-A0503854A

PATIENT
  Age: 42 Year
  Sex: Female

DRUGS (1)
  1. PAXIL CR [Suspect]
     Indication: DEPRESSION
     Dosage: 37.5MG PER DAY
     Route: 048
     Dates: start: 19970101, end: 20040201

REACTIONS (5)
  - AFFECT LABILITY [None]
  - AGITATION [None]
  - MIGRAINE PROPHYLAXIS [None]
  - PANIC ATTACK [None]
  - SUICIDAL IDEATION [None]
